FAERS Safety Report 7799494-3 (Version None)
Quarter: 2011Q4

REPORT INFORMATION
  Report Type: 
  Country: None (occurrence: None)
  Receive Date: 20111006
  Receipt Date: 20110926
  Transmission Date: 20120403
  Serious: Yes (Disabling, Other)
  Sender: FDA-Public Use
  Company Number: PHEH2009US16955

PATIENT
  Sex: Male

DRUGS (71)
  1. PENICILLIN VK [Concomitant]
     Dosage: 500 MG, UNK
  2. CHLORHEXIDINE GLUCONATE [Concomitant]
  3. CIPROFLOXACIN [Concomitant]
  4. ATACAND [Concomitant]
  5. PREDNISOLONE ACETATE [Concomitant]
  6. DURAGESIC-100 [Concomitant]
  7. INSULIN [Concomitant]
  8. ALIMTA [Concomitant]
  9. ZOMETA [Suspect]
     Indication: METASTASES TO BONE
  10. ATROP [Concomitant]
     Dosage: 2.5 MG, UNK
  11. FLOMAX [Concomitant]
  12. LIPITOR [Concomitant]
  13. PROMETHAZINE W/ CODEINE [Concomitant]
  14. NASONEX [Concomitant]
  15. TUSSIONEX [Concomitant]
  16. ARANESP [Concomitant]
  17. NEXIUM [Concomitant]
  18. CARISOPRODOL [Concomitant]
     Dosage: 350 MG, UNK
  19. BENZONATATE [Concomitant]
  20. ZYRTEC [Concomitant]
  21. LOPROX [Concomitant]
  22. VYTORIN [Concomitant]
  23. HYDROMORPHONE HCL [Concomitant]
  24. ONDANSETRON [Concomitant]
  25. AVAPRO [Concomitant]
     Dosage: 150 MG, UNK
  26. GLUCOTROL [Concomitant]
  27. ACCUPRIL [Concomitant]
  28. ADVANTAGE [Concomitant]
  29. LEVAQUIN [Concomitant]
  30. HYDROCODONE BITARTRATE [Concomitant]
  31. PROTONIX [Concomitant]
  32. ZOMETA [Suspect]
     Indication: MULTIPLE MYELOMA
     Dates: start: 20061018, end: 20080101
  33. DEXAMETHASONE [Concomitant]
     Dosage: 4 MG, UNK
  34. NOVOBIOCIN [Concomitant]
  35. LANTUS [Concomitant]
  36. QUINAPRIL [Concomitant]
  37. AZMACORT [Concomitant]
  38. VALTREX [Concomitant]
  39. NAPROXEN [Concomitant]
  40. SERTRALINE HYDROCHLORIDE [Concomitant]
  41. SIMVASTATIN [Concomitant]
  42. FUROSEMIDE [Concomitant]
     Dosage: 40 MG, UNK
  43. POTASSIUM CHLORIDE [Concomitant]
     Dosage: 10 MEQ, UNK
  44. OXYCODONE HCL [Concomitant]
  45. ACTOS [Concomitant]
  46. AUGMENTIN '125' [Concomitant]
  47. ZITHROMAX [Concomitant]
  48. CYCLOBENZAPRINE [Concomitant]
  49. PHENAZOPYRIDINE HCL TAB [Concomitant]
  50. FINASTERIDE [Concomitant]
  51. LORAZEPAM [Concomitant]
  52. METOPROLOL TARTRATE [Concomitant]
  53. CLINDAMYCIN [Concomitant]
     Dosage: 150 MG, UNK
  54. FOLIC ACID [Concomitant]
     Dosage: 1 MG, UNK
  55. METRONIDAZOLE [Concomitant]
  56. LIDOCAINE [Concomitant]
  57. ZOVIRAX [Concomitant]
  58. FAMVIR [Concomitant]
  59. PROCHLORPERAZINE [Concomitant]
  60. DUONEB [Concomitant]
  61. TARCEVA [Concomitant]
  62. ZETIA [Concomitant]
  63. DOXYCYCLA [Concomitant]
  64. ALPRAZOLAM [Concomitant]
     Dosage: 0.5 MG, UNK
  65. GUAIFED-PD [Concomitant]
  66. HUMIBID [Concomitant]
  67. NEUPOGEN [Concomitant]
  68. CEPHALEXIN [Concomitant]
  69. FLUCONAZOLE [Concomitant]
  70. MUPIROCIN [Concomitant]
  71. NAVELBINE [Concomitant]

REACTIONS (75)
  - DENTAL CARIES [None]
  - HILAR LYMPHADENOPATHY [None]
  - HEPATIC MASS [None]
  - HYPOACUSIS [None]
  - GROIN PAIN [None]
  - METASTASES TO BONE [None]
  - TESTICULAR PAIN [None]
  - ARTHRALGIA [None]
  - BACK PAIN [None]
  - EMPHYSEMA [None]
  - ARTERIOSCLEROSIS [None]
  - INJURY [None]
  - ANHEDONIA [None]
  - VOMITING [None]
  - FALL [None]
  - LEUKOPENIA [None]
  - NEUROPATHY PERIPHERAL [None]
  - INGUINAL HERNIA [None]
  - CONSTIPATION [None]
  - ANXIETY [None]
  - PULMONARY MASS [None]
  - HAND FRACTURE [None]
  - PROSTATOMEGALY [None]
  - URETERAL NEOPLASM [None]
  - EXPOSED BONE IN JAW [None]
  - ALOPECIA [None]
  - RENAL FAILURE [None]
  - UTERINE MASS [None]
  - DEPRESSION [None]
  - JAW FRACTURE [None]
  - CARDIAC TAMPONADE [None]
  - FEMUR FRACTURE [None]
  - METASTASES TO SPINE [None]
  - DYSPNOEA [None]
  - TOOTH ABSCESS [None]
  - HYDROCELE [None]
  - HYDROURETER [None]
  - PENILE INFECTION [None]
  - ATELECTASIS [None]
  - INSOMNIA [None]
  - PAIN [None]
  - INGROWING NAIL [None]
  - SWELLING [None]
  - IMPAIRED HEALING [None]
  - HYPOAESTHESIA [None]
  - ANAEMIA [None]
  - BULLOUS LUNG DISEASE [None]
  - RADICULOPATHY [None]
  - OSTEONECROSIS OF JAW [None]
  - BONE EROSION [None]
  - COUGH [None]
  - METASTASES TO LIVER [None]
  - PROSTATE CANCER METASTATIC [None]
  - NEPHROLITHIASIS [None]
  - HYDRONEPHROSIS [None]
  - CORONARY ARTERY DISEASE [None]
  - DIVERTICULUM INTESTINAL [None]
  - EPISTAXIS [None]
  - ASCITES [None]
  - URETHRAL OBSTRUCTION [None]
  - NON-SMALL CELL LUNG CANCER METASTATIC [None]
  - PAIN IN EXTREMITY [None]
  - PANCYTOPENIA [None]
  - SPLEEN DISORDER [None]
  - HAEMATURIA [None]
  - LYMPHOEDEMA [None]
  - ABDOMINAL PAIN [None]
  - RENAL COLIC [None]
  - METASTASES TO CENTRAL NERVOUS SYSTEM [None]
  - PNEUMOTHORAX [None]
  - PARONYCHIA [None]
  - NAUSEA [None]
  - NECK PAIN [None]
  - GASTROENTERITIS RADIATION [None]
  - BLOOD URINE PRESENT [None]
